FAERS Safety Report 9186398 (Version 1)
Quarter: 2013Q1

REPORT INFORMATION
  Report Type: Spontaneous
  Country: US (occurrence: US)
  Receive Date: 20130325
  Receipt Date: 20130325
  Transmission Date: 20140127
  Serious: Yes (Other)
  Sender: FDA-Public Use
  Company Number: US-JNJFOC-20130307866

PATIENT
  Sex: Female
  Weight: 111.59 kg

DRUGS (7)
  1. REMICADE [Suspect]
     Indication: RHEUMATOID ARTHRITIS
     Route: 042
     Dates: start: 201107
  2. AMITRIPTYLINE [Suspect]
     Indication: FIBROMYALGIA
     Route: 048
     Dates: start: 2010
  3. OMEPRAZOLE [Concomitant]
     Indication: GASTROOESOPHAGEAL REFLUX DISEASE
     Route: 065
  4. PHENTERMINE [Concomitant]
     Indication: WEIGHT DECREASED
     Route: 065
     Dates: start: 2012
  5. SINGULAIR [Concomitant]
     Indication: MULTIPLE ALLERGIES
     Route: 048
  6. ALBUTEROL INHALERS [Concomitant]
     Indication: ASTHMA
     Route: 055
  7. CICLESONIDE [Concomitant]
     Indication: ASTHMA
     Dosage: 2 PUFFS IN THE MORNING
     Route: 055
     Dates: start: 201210

REACTIONS (7)
  - Weight increased [Not Recovered/Not Resolved]
  - Fatigue [Not Recovered/Not Resolved]
  - Stomatitis [Not Recovered/Not Resolved]
  - Paraesthesia [Not Recovered/Not Resolved]
  - Laceration [Not Recovered/Not Resolved]
  - Alopecia [Not Recovered/Not Resolved]
  - Drug effect decreased [Not Recovered/Not Resolved]
